FAERS Safety Report 8290142-5 (Version None)
Quarter: 2012Q1

REPORT INFORMATION
  Report Type: 
  Country: None (occurrence: None)
  Receive Date: 20120316
  Receipt Date: 20090108
  Transmission Date: 20120608
  Serious: Yes (Other)
  Sender: FDA-Public Use
  Company Number: PHEH2009US00579

PATIENT
  Sex: Male

DRUGS (3)
  1. TEKTURNA [Suspect]
  2. ANTIHYPERTENSIVES (NO INGREDIENTES/SUBSTANCES) [Concomitant]
  3. COZAAR [Concomitant]

REACTIONS (2)
  - SWOLLEN TONGUE [None]
  - ANGIOEDEMA [None]
